FAERS Safety Report 17992641 (Version 2)
Quarter: 2021Q2

REPORT INFORMATION
  Report Type: Spontaneous
  Country: JP (occurrence: JP)
  Receive Date: 20200708
  Receipt Date: 20210628
  Transmission Date: 20210717
  Serious: Yes (Life-Threatening, Hospitalization)
  Sender: FDA-Public Use
  Company Number: JP-TEVA-2020-JP-1796801

PATIENT
  Age: 9 Day
  Sex: Female

DRUGS (8)
  1. SALINE [Suspect]
     Active Substance: SODIUM CHLORIDE
     Indication: HYPOTENSION
     Route: 050
  2. DOBUTAMINE [Suspect]
     Active Substance: DOBUTAMINE HYDROCHLORIDE
     Indication: HYPOTENSION
     Route: 065
  3. HYDROCORTISONE. [Suspect]
     Active Substance: HYDROCORTISONE
     Indication: HYPOTENSION
     Route: 065
  4. DOPAMINE [Suspect]
     Active Substance: DOPAMINE HYDROCHLORIDE
     Indication: HYPOTENSION
     Route: 065
  5. FUROSEMIDE. [Suspect]
     Active Substance: FUROSEMIDE
     Indication: OLIGURIA
     Route: 065
  6. DIAZOXIDE [Suspect]
     Active Substance: DIAZOXIDE
     Indication: HYPERINSULINISM
     Dosage: 5 MG/KG DAILY;
     Route: 048
  7. DIAZOXIDE [Suspect]
     Active Substance: DIAZOXIDE
     Dosage: 9 MG/KG DAILY;
     Route: 048
  8. DEXTROSE. [Suspect]
     Active Substance: DEXTROSE
     Indication: HYPOGLYCAEMIA
     Dosage: SOLUTION; DOSE: }10 MG/KG/MIN
     Route: 041

REACTIONS (4)
  - Drug ineffective [Unknown]
  - Oedema [Recovered/Resolved]
  - Hypotension [Recovered/Resolved]
  - Oliguria [Recovered/Resolved]
